FAERS Safety Report 16057061 (Version 1)
Quarter: 2019Q1

REPORT INFORMATION
  Report Type: Spontaneous
  Country: US (occurrence: US)
  Receive Date: 20190209
  Receipt Date: 20190209
  Transmission Date: 20190418
  Serious: No
  Sender: FDA-Public Use
  Company Number: None

PATIENT
  Age: 49 Year
  Sex: Female

DRUGS (1)
  1. REMICADE [Suspect]
     Active Substance: INFLIXIMAB
     Dates: start: 201812, end: 20190209

REACTIONS (3)
  - Flushing [None]
  - Blood pressure increased [None]
  - Alopecia [None]

NARRATIVE: CASE EVENT DATE: 20181209
